FAERS Safety Report 5772863-9 (Version None)
Quarter: 2008Q2

REPORT INFORMATION
  Report Type: 
  Country: None (occurrence: None)
  Receive Date: 20080613
  Receipt Date: 20080603
  Transmission Date: 20081010
  Serious: Yes (Hospitalization)
  Sender: FDA-Public Use
  Company Number: US-ABBOTT-08P-163-0454083-00

PATIENT
  Sex: Female
  Weight: 107.14 kg

DRUGS (1)
  1. COATED PDS [Suspect]
     Indication: HIGH DENSITY LIPOPROTEIN DECREASED
     Route: 048
     Dates: start: 20080301, end: 20080509

REACTIONS (5)
  - ANAEMIA [None]
  - FLUSHING [None]
  - HYPERSENSITIVITY [None]
  - VIRAL INFECTION [None]
  - VOMITING [None]
